FAERS Safety Report 12586865 (Version 2)
Quarter: 2016Q3

REPORT INFORMATION
  Report Type: Report from Study
  Country: US (occurrence: US)
  Receive Date: 20160725
  Receipt Date: 20160812
  Transmission Date: 20161109
  Serious: Yes (Other)
  Sender: FDA-Public Use
  Company Number: US-JNJFOC-20160715722

PATIENT
  Age: 72 Year
  Sex: Female

DRUGS (1)
  1. IMBRUVICA [Suspect]
     Active Substance: IBRUTINIB
     Indication: CHRONIC LYMPHOCYTIC LEUKAEMIA
     Route: 048
     Dates: start: 20160621, end: 20160712

REACTIONS (21)
  - Weight increased [Unknown]
  - Dizziness postural [Recovered/Resolved]
  - Contusion [Not Recovered/Not Resolved]
  - Epistaxis [Not Recovered/Not Resolved]
  - Rectal haemorrhage [Not Recovered/Not Resolved]
  - Dysphonia [Recovering/Resolving]
  - Haematochezia [Not Recovered/Not Resolved]
  - Vaginal haemorrhage [Not Recovered/Not Resolved]
  - International normalised ratio increased [Unknown]
  - Feeling abnormal [Unknown]
  - Rash erythematous [Not Recovered/Not Resolved]
  - Off label use [Recovered/Resolved]
  - Erythema [Unknown]
  - Dysstasia [Not Recovered/Not Resolved]
  - Peripheral swelling [Not Recovered/Not Resolved]
  - Nausea [Recovered/Resolved]
  - Angina bullosa haemorrhagica [Not Recovered/Not Resolved]
  - Incorrect dose administered [Recovered/Resolved]
  - Dyskinesia [Recovered/Resolved]
  - Adverse reaction [Unknown]
  - Constipation [Unknown]

NARRATIVE: CASE EVENT DATE: 2016
